FAERS Safety Report 4336504-X (Version None)
Quarter: 2004Q2

REPORT INFORMATION
  Report Type: 
  Country: None (occurrence: None)
  Receive Date: 20040409
  Receipt Date: 20040409
  Transmission Date: 20050107
  Serious: Yes (Other)
  Sender: FDA-Public Use
  Company Number: None

PATIENT
  Sex: Male
  Weight: 26 kg

DRUGS (3)
  1. METHOTREXATE [Suspect]
     Indication: ACUTE LYMPHOCYTIC LEUKAEMIA
     Dosage: 12MG WEEK 92 ITRATRACHEAL
     Route: 039
     Dates: start: 20040312, end: 20040312
  2. MERCAPTOPURINE [Suspect]
     Indication: ACUTE LYMPHOCYTIC LEUKAEMIA
     Dosage: 75 MG DAILY QM ORAL
     Route: 048
     Dates: start: 20040312, end: 20040317
  3. PENTAMIDINE [Concomitant]

REACTIONS (2)
  - ALANINE AMINOTRANSFERASE INCREASED [None]
  - VIRAL INFECTION [None]
